FAERS Safety Report 8923977 (Version 1)
Quarter: 2012Q4

REPORT INFORMATION
  Report Type: Spontaneous
  Country: HK (occurrence: None)
  Receive Date: 20121116
  Receipt Date: 20121116
  Transmission Date: 20130627
  Serious: Yes (Death)
  Sender: FDA-Public Use
  Company Number: 1486859

PATIENT
  Sex: Female

DRUGS (2)
  1. CYTARABINE [Suspect]
     Indication: ACUTE MYELOID LEUKEMIA
     Dosage: /day
  2. CLOFARABINE [Suspect]
     Indication: ACUTE MYELOID LEUKEMIA
     Dosage: /day

REACTIONS (3)
  - Palmar-plantar erythrodysaesthesia syndrome [None]
  - Granulocytopenia [None]
  - Staphylococcal sepsis [None]
